FAERS Safety Report 6779294-3 (Version None)
Quarter: 2010Q2

REPORT INFORMATION
  Report Type: 
  Country: None (occurrence: None)
  Receive Date: 20100618
  Receipt Date: 20100607
  Transmission Date: 20101027
  Serious: Yes (Other)
  Sender: FDA-Public Use
  Company Number: CA-JNJFOC-20100602778

PATIENT
  Sex: Male
  Weight: 97.2 kg

DRUGS (3)
  1. REMICADE [Suspect]
     Indication: PSORIASIS
  2. METHOTREXATE [Concomitant]
     Route: 048
  3. VENTOLIN [Concomitant]
     Dosage: AS NECESSARY
     Route: 055

REACTIONS (4)
  - CHEST DISCOMFORT [None]
  - DYSPNOEA [None]
  - EYE PRURITUS [None]
  - PYREXIA [None]
